FAERS Safety Report 13510429 (Version 2)
Quarter: 2017Q2

REPORT INFORMATION
  Report Type: Report from Study
  Country: US (occurrence: US)
  Receive Date: 20170503
  Receipt Date: 20170531
  Transmission Date: 20170830
  Serious: Yes (Other)
  Sender: FDA-Public Use
  Company Number: US-AMGEN-USASL2017064515

PATIENT
  Age: 75 Year
  Sex: Female

DRUGS (1)
  1. REPATHA [Suspect]
     Active Substance: EVOLOCUMAB
     Indication: PRODUCT USED FOR UNKNOWN INDICATION
     Dosage: 420 MG, Q4WK
     Route: 065
     Dates: start: 201612

REACTIONS (8)
  - Carotid arteriosclerosis [Unknown]
  - Breast cancer [Recovering/Resolving]
  - Incorrect dose administered [Unknown]
  - Dysphonia [Not Recovered/Not Resolved]
  - Wrong technique in product usage process [Unknown]
  - Vascular calcification [Unknown]
  - Cough [Not Recovered/Not Resolved]
  - Chronic throat clearing [Not Recovered/Not Resolved]

NARRATIVE: CASE EVENT DATE: 20170425
